FAERS Safety Report 5268322-2 (Version None)
Quarter: 2007Q1

REPORT INFORMATION
  Report Type: 
  Country: None (occurrence: None)
  Receive Date: 20070313
  Receipt Date: 20070302
  Transmission Date: 20070707
  Serious: Yes (Other)
  Sender: FDA-Public Use
  Company Number: 2007-00563

PATIENT
  Age: 67 Year
  Sex: Female
  Weight: 60 kg

DRUGS (20)
  1. VELCADE [Suspect]
     Indication: MULTIPLE MYELOMA
     Dosage: INTRAVENOUS
     Route: 042
     Dates: start: 20070102, end: 20070228
  2. SYNTHROID [Concomitant]
  3. ASPIRIN [Concomitant]
  4. MAGNESIUM GLUCONATE (MAGNESIUM GLUCONATE) [Concomitant]
  5. FOLIC ACID [Concomitant]
  6. DECLOMYCIN [Concomitant]
  7. CELEBREX [Concomitant]
  8. APO-PREDNISONE [Concomitant]
  9. NOVOGESIC (PARACETAMOL) [Concomitant]
  10. SENOKOT [Concomitant]
  11. MILK OF MAGNESIA TAB [Concomitant]
  12. CASCARA (CASCARA) [Concomitant]
  13. GRAVOL TAB [Concomitant]
  14. PROCYTOX [Concomitant]
  15. LEVAQUIN [Concomitant]
  16. HYDROMORFON (HYDROMORPHONE HYDROCHLORIDE) [Concomitant]
  17. ATIVAN [Concomitant]
  18. DILAUDID (HYDROMORPHOINE HYDROCHLORIDE) [Concomitant]
  19. MORPHINE [Concomitant]
  20. POTASSIUM CHLORIDE [Concomitant]

REACTIONS (4)
  - BONE PAIN [None]
  - CHEST PAIN [None]
  - DYSPNOEA [None]
  - OXYGEN SATURATION DECREASED [None]
